FAERS Safety Report 20737444 (Version 1)
Quarter: 2022Q2

REPORT INFORMATION
  Report Type: Spontaneous
  Country: CN (occurrence: CN)
  Receive Date: 20220421
  Receipt Date: 20220421
  Transmission Date: 20220720
  Serious: Yes (Other)
  Sender: FDA-Public Use
  Company Number: CN-BAXTER-2022BAX008462

PATIENT
  Age: 52 Year
  Sex: Female

DRUGS (2)
  1. MANNITOL [Suspect]
     Active Substance: MANNITOL
     Indication: Swelling
     Dosage: DOSAGE: 1 BAG
     Route: 041
     Dates: start: 20220325, end: 20220327
  2. SODIUM ESCINATE [Suspect]
     Active Substance: SODIUM ESCINATE
     Indication: Swelling
     Dosage: DOSAGE: 3 BOTTLE
     Route: 041
     Dates: start: 20220325, end: 20220327

REACTIONS (3)
  - Rash [Recovering/Resolving]
  - Erythema [Not Recovered/Not Resolved]
  - Pruritus [Not Recovered/Not Resolved]

NARRATIVE: CASE EVENT DATE: 20220327
